FAERS Safety Report 4565327-1 (Version None)
Quarter: 2005Q1

REPORT INFORMATION
  Report Type: 
  Country: None (occurrence: None)
  Receive Date: 20050127
  Receipt Date: 20050127
  Transmission Date: 20050727
  Serious: Yes (Hospitalization)
  Sender: FDA-Public Use
  Company Number: None

PATIENT
  Age: 62 Year
  Sex: Male
  Weight: 65.2 kg

DRUGS (11)
  1. DILANTIN [Suspect]
  2. ACETAMINOPHEN [Concomitant]
  3. GATIFLOXACIN [Concomitant]
  4. SIMVASTATIN [Concomitant]
  5. MULTI-VITAMINS [Concomitant]
  6. LISINOPRIL [Concomitant]
  7. IPRATROPIUM BROMIDE [Concomitant]
  8. FOLIC ACID [Concomitant]
  9. M.V.I. [Concomitant]
  10. THIAMINE [Concomitant]
  11. FOLIC ACID [Concomitant]

REACTIONS (1)
  - COORDINATION ABNORMAL [None]
